FAERS Safety Report 6718996-1 (Version None)
Quarter: 2010Q2

REPORT INFORMATION
  Report Type: 
  Country: None (occurrence: None)
  Receive Date: 20100511
  Receipt Date: 20090529
  Transmission Date: 20101027
  Serious: Yes (Other)
  Sender: FDA-Public Use
  Company Number: PL-JNJFOC-20090706902

PATIENT
  Age: 65 Year
  Sex: Male

DRUGS (4)
  1. ORUNGAL [Suspect]
     Indication: FUNGAL INFECTION
     Route: 048
  2. AMBISOME [Suspect]
     Indication: DRUG USE FOR UNKNOWN INDICATION
     Route: 042
  3. KETOCONAZOLE [Concomitant]
  4. INSULIN [Concomitant]

REACTIONS (1)
  - DRUG INEFFECTIVE [None]
